FAERS Safety Report 24537972 (Version 1)
Quarter: 2024Q4

REPORT INFORMATION
  Report Type: Spontaneous
  Country: RO (occurrence: BG)
  Receive Date: 20241023
  Receipt Date: 20241023
  Transmission Date: 20250114
  Serious: Yes (Other)
  Sender: Haleon PLC
  Company Number: RO-RBHC-20-24-BGR-RB-0007452

PATIENT
  Age: 49 Year
  Sex: Male

DRUGS (8)
  1. IBUPROFEN [Suspect]
     Active Substance: IBUPROFEN
     Indication: Pain
     Dosage: UNK
     Route: 065
  2. IBUPROFEN [Suspect]
     Active Substance: IBUPROFEN
     Indication: Arthralgia
  3. IBUPROFEN [Suspect]
     Active Substance: IBUPROFEN
     Indication: Fatigue
  4. IBUPROFEN [Suspect]
     Active Substance: IBUPROFEN
     Indication: Pyrexia
  5. IBUPROFEN [Suspect]
     Active Substance: IBUPROFEN
     Indication: Burning sensation
  6. IBUPROFEN [Suspect]
     Active Substance: IBUPROFEN
     Indication: Hypoaesthesia
  7. IBUPROFEN [Suspect]
     Active Substance: IBUPROFEN
     Indication: Temporomandibular pain and dysfunction syndrome
  8. DOXYCYCLINE [Concomitant]
     Active Substance: DOXYCYCLINE
     Indication: Product used for unknown indication
     Dosage: UNK
     Route: 065

REACTIONS (2)
  - Polyarteritis nodosa [Recovering/Resolving]
  - Drug ineffective [Not Recovered/Not Resolved]
